FAERS Safety Report 7476199-X (Version None)
Quarter: 2011Q2

REPORT INFORMATION
  Report Type: 
  Country: None (occurrence: None)
  Receive Date: 20110510
  Receipt Date: 20110510
  Transmission Date: 20111010
  Serious: Yes (Hospitalization)
  Sender: FDA-Public Use
  Company Number: None

PATIENT
  Age: 85 Year
  Sex: Female
  Weight: 53.978 kg

DRUGS (1)
  1. PRADAXA [Suspect]
     Dosage: 150MG EVERY 12 HOURS PO
     Route: 048

REACTIONS (2)
  - TREATMENT FAILURE [None]
  - DEEP VEIN THROMBOSIS [None]
